FAERS Safety Report 19012939 (Version 9)
Quarter: 2021Q4

REPORT INFORMATION
  Report Type: Report from Study
  Country: DE (occurrence: None)
  Receive Date: 20210315
  Receipt Date: 20211201
  Transmission Date: 20220303
  Serious: Yes (Hospitalization)
  Sender: FDA-Public Use
  Company Number: DE-EISAI MEDICAL RESEARCH-EC-2021-089498

PATIENT
  Age: 59 Year
  Sex: Male
  Weight: 72.5 kg

DRUGS (17)
  1. LENVATINIB [Suspect]
     Active Substance: LENVATINIB
     Indication: Non-small cell lung cancer metastatic
     Dosage: STARTING DOSE AT 24 MILLIGRAM, FLUCTUATED DOSAGE
     Route: 048
     Dates: start: 20201221, end: 20210221
  2. LENVATINIB [Suspect]
     Active Substance: LENVATINIB
     Route: 048
     Dates: start: 20210222, end: 20210304
  3. LENVATINIB [Suspect]
     Active Substance: LENVATINIB
     Dosage: STARTING DOSE 14 MILLIGRAM, QD; FLUCTUATED DOSAGE
     Route: 048
     Dates: start: 20210310
  4. RAMIPRIL [Concomitant]
     Active Substance: RAMIPRIL
     Dates: start: 201812
  5. BISOPROLOL [Concomitant]
     Active Substance: BISOPROLOL
     Dates: start: 201903
  6. OLODATEROL HYDROCHLORIDE\TIOTROPIUM BROMIDE MONOHYDRATE [Concomitant]
     Active Substance: OLODATEROL HYDROCHLORIDE\TIOTROPIUM BROMIDE MONOHYDRATE
     Dates: start: 201904
  7. PANTOPRAZOLE [Concomitant]
     Active Substance: PANTOPRAZOLE
     Dates: start: 202004
  8. NOVALGIN (METAMIZOLE SODIUM) [Concomitant]
     Active Substance: METAMIZOLE SODIUM
     Dates: start: 202006
  9. FENTANYL [Concomitant]
     Active Substance: FENTANYL
     Dates: start: 202010, end: 20210407
  10. FENOTEROL HYDROBROMIDE\IPRATROPIUM BROMIDE [Concomitant]
     Active Substance: FENOTEROL HYDROBROMIDE\IPRATROPIUM BROMIDE
     Dates: start: 20210103
  11. MOVICOL [Concomitant]
     Active Substance: POLYETHYLENE GLYCOL 3350\POTASSIUM CHLORIDE\SODIUM BICARBONATE\SODIUM CHLORIDE
     Dates: start: 20210103
  12. TAVOR (LORAZEPAM) [Concomitant]
     Active Substance: LORAZEPAM
     Dosage: WAFER
     Dates: start: 20210103, end: 20210407
  13. CALCIUM [Concomitant]
     Active Substance: CALCIUM
     Dates: start: 20210110
  14. NITRENDIPINE [Concomitant]
     Active Substance: NITRENDIPINE
     Dates: start: 20210117
  15. MOXONIDINE [Concomitant]
     Active Substance: MOXONIDINE
     Dates: start: 20210118
  16. LERCANIDIPINE HYDROCHLORIDE [Concomitant]
     Active Substance: LERCANIDIPINE HYDROCHLORIDE
     Dates: start: 20210121
  17. ZOPICLONE [Concomitant]
     Active Substance: ZOPICLONE
     Dates: start: 20210121

REACTIONS (1)
  - Rash [Recovered/Resolved]

NARRATIVE: CASE EVENT DATE: 20210222
